FAERS Safety Report 6149209-X (Version None)
Quarter: 2009Q2

REPORT INFORMATION
  Report Type: 
  Country: None (occurrence: None)
  Receive Date: 20090406
  Receipt Date: 20090406
  Transmission Date: 20091009
  Serious: Yes (Other)
  Sender: FDA-Public Use
  Company Number: None

PATIENT
  Age: 61 Year
  Sex: Female
  Weight: 49.4421 kg

DRUGS (1)
  1. TARCEVA [Suspect]
     Indication: LUNG NEOPLASM MALIGNANT
     Dosage: 150 MG ONCE DAILY PO ABOUT 5 AND 1/2 WEEKS
     Route: 048
     Dates: start: 20090216, end: 20090325

REACTIONS (5)
  - DIARRHOEA [None]
  - DRY SKIN [None]
  - FATIGUE [None]
  - NAUSEA [None]
  - VOMITING [None]
